FAERS Safety Report 6712562-X (Version None)
Quarter: 2010Q2

REPORT INFORMATION
  Report Type: 
  Country: None (occurrence: None)
  Receive Date: 20100505
  Receipt Date: 20100505
  Transmission Date: 20101027
  Serious: No
  Sender: FDA-Public Use
  Company Number: None

PATIENT
  Sex: Female
  Weight: 65.7716 kg

DRUGS (1)
  1. LEVAQUIN [Suspect]
     Indication: URINARY TRACT INFECTION
     Dosage: 500MG  DAILY ONCE FOR 7 DAYS
     Dates: start: 20100409, end: 20100413

REACTIONS (13)
  - ARTHRALGIA [None]
  - BLISTER [None]
  - CHEST PAIN [None]
  - ERYTHEMA [None]
  - EYE PAIN [None]
  - EYELID PAIN [None]
  - FACIAL PAIN [None]
  - INFLAMMATION [None]
  - INTRAOCULAR PRESSURE INCREASED [None]
  - PAIN IN EXTREMITY [None]
  - PROCTALGIA [None]
  - PRURITUS [None]
  - SCAB [None]
